FAERS Safety Report 17207694 (Version 1)
Quarter: 2019Q4

REPORT INFORMATION
  Report Type: Spontaneous
  Country: US (occurrence: US)
  Receive Date: 20191227
  Receipt Date: 20191227
  Transmission Date: 20200122
  Serious: No
  Sender: FDA-Public Use
  Company Number: US-MYLANLABS-2019M1124109

PATIENT
  Sex: Female

DRUGS (1)
  1. LAMOTRIGINE. [Suspect]
     Active Substance: LAMOTRIGINE
     Indication: PRODUCT USED FOR UNKNOWN INDICATION

REACTIONS (9)
  - Feeling abnormal [Unknown]
  - Tachyphrenia [Unknown]
  - Irritability [Unknown]
  - Restlessness [Unknown]
  - Agitation [Unknown]
  - Hypomania [Unknown]
  - Depression [Unknown]
  - Impulsive behaviour [Unknown]
  - Insomnia [Unknown]
